FAERS Safety Report 3576442 (Version 3)
Quarter: 2020Q3

REPORT INFORMATION
  Report Type: Spontaneous
  Country: FR (occurrence: None)
  Receive Date: 20000218
  Receipt Date: 20001128
  Transmission Date: 20201105
  Serious: Yes (Death)
  Sender: FDA-Public Use
  Company Number: 00P-056-0086657-00(0)

PATIENT
  Age: 78 Year
  Sex: Male
  Weight: 52 kg

DRUGS (10)
  1. FERROUS SULFATE. [Suspect]
     Active Substance: FERROUS SULFATE
     Dosage: 2 DOSAGE FORMS 1 IN 1 D PER ORAL
     Route: 048
     Dates: start: 19990614, end: 19991116
  2. METHYLPREDNISOLONE (METHYLPREDNISOLONE) [Concomitant]
     Active Substance: METHYLPREDNISOLONE
  3. FLUINDIONE [Concomitant]
     Active Substance: FLUINDIONE
  4. AMIODARONE HYDROCHLORIDE. [Concomitant]
     Active Substance: AMIODARONE HYDROCHLORIDE
  5. AMBROXOL [Concomitant]
     Active Substance: AMBROXOL
  6. SALMETEROL (SALMETEROL) [Concomitant]
  7. FLUTOXIDE [Concomitant]
  8. FUROSEMIDE (FUROSEMIDE) [Concomitant]
     Active Substance: FUROSEMIDE
  9. OMEPRAZOLE. [Concomitant]
     Active Substance: OMEPRAZOLE
  10. MIDAZOLAM HYDROCHLORIDE. [Concomitant]
     Active Substance: MIDAZOLAM HYDROCHLORIDE

REACTIONS (8)
  - Chest X-ray abnormal [None]
  - Respiratory disorder [None]
  - Sudden death [None]
  - Haemoptysis [None]
  - Bronchitis [None]
  - Necrosis [None]
  - Aspiration [None]
  - Gastrooesophageal reflux disease [None]

NARRATIVE: CASE EVENT DATE: 19991116
